FAERS Safety Report 5659396-5 (Version None)
Quarter: 2008Q1

REPORT INFORMATION
  Report Type: 
  Country: None (occurrence: None)
  Receive Date: 20080311
  Receipt Date: 20080221
  Transmission Date: 20080703
  Serious: Yes (Other)
  Sender: FDA-Public Use
  Company Number: GB-RANBAXY-2008RR-13284

PATIENT

DRUGS (6)
  1. SERTRALINE [Suspect]
     Indication: DEPRESSION
     Dosage: 50 MG, UNK
     Route: 048
     Dates: start: 20080204, end: 20080206
  2. IBUPROFEN TABLETS BP 400MG [Concomitant]
     Dosage: 400 MG, TID
     Route: 048
  3. LOFEPRAMINE [Concomitant]
     Indication: DEPRESSION
     Dosage: 70 MG, BID
     Dates: start: 20071101
  4. MIRTAZAPINE [Concomitant]
     Dosage: 15 MG, QD
     Dates: start: 20071203
  5. ACETAMINOPHEN [Concomitant]
     Dosage: 2 DF, QID
  6. TRANEXAMIC ACID [Concomitant]
     Dosage: 500 MG, UNK
     Route: 048

REACTIONS (7)
  - CHEST DISCOMFORT [None]
  - DYSPHAGIA [None]
  - EARLY MORNING AWAKENING [None]
  - MALAISE [None]
  - MUSCLE SPASMS [None]
  - MYDRIASIS [None]
  - PHARYNGOLARYNGEAL PAIN [None]
